FAERS Safety Report 5594374-6 (Version None)
Quarter: 2008Q1

REPORT INFORMATION
  Report Type: 
  Country: None (occurrence: None)
  Receive Date: 20080117
  Receipt Date: 20080109
  Transmission Date: 20080703
  Serious: Yes (Hospitalization)
  Sender: FDA-Public Use
  Company Number: US-BAYER-200810965NA

PATIENT
  Age: 57 Year
  Sex: Female

DRUGS (17)
  1. FLUDARA [Suspect]
     Indication: CHRONIC LYMPHOCYTIC LEUKAEMIA
     Route: 042
     Dates: start: 20071205
  2. OXALIPLATIN [Suspect]
     Indication: CHRONIC LYMPHOCYTIC LEUKAEMIA
     Route: 042
     Dates: start: 20071204
  3. CYTARABINE [Suspect]
     Indication: CHRONIC LYMPHOCYTIC LEUKAEMIA
     Route: 042
     Dates: start: 20071205
  4. RITUXAN [Suspect]
     Indication: CHRONIC LYMPHOCYTIC LEUKAEMIA
     Route: 042
     Dates: start: 20071206
  5. PEGFILGRASTIM [Suspect]
     Indication: CHEMOTHERAPY CYTOKINE PROPHYLAXIS
     Route: 058
     Dates: start: 20071208
  6. AMBIEN CR [Concomitant]
     Dosage: TOTAL DAILY DOSE: 12.5 MG
     Route: 048
  7. CYMBALTA [Concomitant]
     Dosage: TOTAL DAILY DOSE: 120 MG
     Route: 048
  8. DAYPRO [Concomitant]
     Dosage: TOTAL DAILY DOSE: 1200 MG
     Route: 048
  9. HYDROCODONE [Concomitant]
     Dosage: TOTAL DAILY DOSE: 1500 MG
     Route: 048
  10. LEVAQUIN [Concomitant]
     Dosage: TOTAL DAILY DOSE: 500 MG
     Route: 048
  11. LEVOTHYROXINE SODIUM [Concomitant]
     Dosage: TOTAL DAILY DOSE: 150 ?G
     Route: 048
  12. NEURONTIN [Concomitant]
     Dosage: TOTAL DAILY DOSE: 600 MG
     Route: 048
  13. PREDNISOLONE 1% OPTHALMIC DROPS [Concomitant]
     Route: 047
  14. PROTONIX [Concomitant]
     Route: 048
  15. BACTRIM DS [Concomitant]
     Route: 048
  16. VALTREX [Concomitant]
     Dosage: TOTAL DAILY DOSE: 500 MG
     Route: 048
  17. CARAFATE [Concomitant]
     Dosage: TOTAL DAILY DOSE: 4 G
     Route: 048

REACTIONS (4)
  - ABDOMINAL PAIN [None]
  - FLANK PAIN [None]
  - NAUSEA [None]
  - VOMITING [None]
